FAERS Safety Report 5778757-7 (Version None)
Quarter: 2008Q2

REPORT INFORMATION
  Report Type: 
  Country: None (occurrence: None)
  Receive Date: 20080618
  Receipt Date: 20080618
  Transmission Date: 20081010
  Serious: Yes (Life-Threatening)
  Sender: FDA-Public Use
  Company Number: None

PATIENT
  Age: 25 Year
  Sex: Female

DRUGS (2)
  1. ONDANSERTRON HCL [Suspect]
     Indication: NAUSEA
     Dosage: 4 MG ONE TIME  IV BOLUS
     Route: 040
     Dates: start: 20080526, end: 20080526
  2. ONDANSERTRON HCL [Suspect]
     Indication: VOMITING
     Dosage: 4 MG ONE TIME  IV BOLUS
     Route: 040
     Dates: start: 20080526, end: 20080526

REACTIONS (5)
  - CHEST DISCOMFORT [None]
  - COUGH [None]
  - DRUG EXPOSURE DURING PREGNANCY [None]
  - DYSPNOEA [None]
  - THROAT TIGHTNESS [None]
